FAERS Safety Report 11567012 (Version 2)
Quarter: 2015Q4

REPORT INFORMATION
  Report Type: Report from Study
  Country: VE (occurrence: VE)
  Receive Date: 20150929
  Receipt Date: 20151125
  Transmission Date: 20160304
  Serious: Yes (Other)
  Sender: FDA-Public Use
  Company Number: VE-ROCHE-1635830

PATIENT
  Age: 80 Year
  Sex: Female

DRUGS (6)
  1. LUCENTIS [Suspect]
     Active Substance: RANIBIZUMAB
     Indication: NEOVASCULAR AGE-RELATED MACULAR DEGENERATION
     Route: 050
     Dates: start: 20140729
  2. LUCENTIS [Suspect]
     Active Substance: RANIBIZUMAB
     Indication: MACULAR DEGENERATION
     Route: 050
     Dates: start: 2014
  3. LUCENTIS [Suspect]
     Active Substance: RANIBIZUMAB
     Dosage: RIGHT EYE
     Route: 050
     Dates: start: 20151108
  4. LOSARTAN POTASSIUM. [Concomitant]
     Active Substance: LOSARTAN POTASSIUM
  5. LUCENTIS [Suspect]
     Active Substance: RANIBIZUMAB
     Dosage: LEFT EYE
     Route: 050
     Dates: start: 20151104, end: 20151104
  6. IBUPROFEN. [Concomitant]
     Active Substance: IBUPROFEN

REACTIONS (7)
  - Cataract [Unknown]
  - Eye haemorrhage [Recovered/Resolved]
  - Depression [Recovering/Resolving]
  - Visual impairment [Recovering/Resolving]
  - Eye disorder [Recovering/Resolving]
  - Visual acuity reduced [Recovering/Resolving]
  - Vitreous floaters [Recovering/Resolving]

NARRATIVE: CASE EVENT DATE: 20151105
